FAERS Safety Report 12376504 (Version 2)
Quarter: 2016Q2

REPORT INFORMATION
  Report Type: Report from Study
  Country: CA (occurrence: CA)
  Receive Date: 20160517
  Receipt Date: 20160518
  Transmission Date: 20160815
  Serious: Yes (Other)
  Sender: FDA-Public Use
  Company Number: CA-JNJFOC-20160510074

PATIENT
  Age: 23 Year
  Sex: Male

DRUGS (2)
  1. REMICADE [Suspect]
     Active Substance: INFLIXIMAB
     Indication: COLITIS ULCERATIVE
     Route: 042
     Dates: start: 20150813
  2. REMICADE [Suspect]
     Active Substance: INFLIXIMAB
     Indication: COLITIS ULCERATIVE
     Route: 042
     Dates: start: 20160511

REACTIONS (5)
  - Oxygen saturation decreased [Unknown]
  - Periorbital oedema [Unknown]
  - Throat tightness [Unknown]
  - Infusion related reaction [Unknown]
  - Flushing [Unknown]

NARRATIVE: CASE EVENT DATE: 20160511
